FAERS Safety Report 16619884 (Version 1)
Quarter: 2019Q3

REPORT INFORMATION
  Report Type: Spontaneous
  Country: US (occurrence: US)
  Receive Date: 20190723
  Receipt Date: 20190723
  Transmission Date: 20191004
  Serious: No
  Sender: FDA-Public Use
  Company Number: US-SEBELA IRELAND LIMITED-2018SEB00241

PATIENT
  Sex: Female

DRUGS (3)
  1. LOW DOSE ESTROGEN (MANUFACTURER UNKNOWN) [Suspect]
     Active Substance: ESTROGENS
     Indication: MENOPAUSAL SYMPTOMS
     Dosage: UNK
  2. LOW DOSE ESTROGEN (MANUFACTURER UNKNOWN) [Suspect]
     Active Substance: ESTROGENS
     Dosage: ^DOUBLE DOSE^
  3. BRISDELLE [Suspect]
     Active Substance: PAROXETINE MESYLATE
     Indication: MENOPAUSAL SYMPTOMS
     Dosage: UNK

REACTIONS (3)
  - Middle insomnia [Unknown]
  - Drug ineffective [Recovered/Resolved]
  - Feeling hot [Unknown]
